FAERS Safety Report 14825220 (Version 2)
Quarter: 2021Q3

REPORT INFORMATION
  Report Type: Other
  Country: JP (occurrence: JP)
  Receive Date: 20180430
  Receipt Date: 20210818
  Transmission Date: 20211014
  Serious: Yes (Other)
  Sender: FDA-Public Use
  Company Number: JP-ROCHE-2114861

PATIENT
  Age: 65 Year
  Sex: Female
  Weight: 55 kg

DRUGS (5)
  1. LOXONIN [Concomitant]
     Active Substance: LOXOPROFEN SODIUM
     Indication: PREMEDICATION
     Route: 048
     Dates: start: 20130723
  2. TACROLIMUS MONOHYDRATE [Concomitant]
     Active Substance: TACROLIMUS
     Indication: IMMUNE TOLERANCE INDUCTION
     Route: 048
     Dates: end: 20130730
  3. RITUXIMAB. [Suspect]
     Active Substance: RITUXIMAB
     Indication: IMMUNE TOLERANCE INDUCTION
     Route: 041
     Dates: start: 20130723, end: 20130723
  4. POLARAMINE [Concomitant]
     Active Substance: DEXCHLORPHENIRAMINE MALEATE
     Indication: PREMEDICATION
     Route: 048
     Dates: start: 20130723, end: 20130723
  5. MYCOPHENOLATE MOFETIL. [Concomitant]
     Active Substance: MYCOPHENOLATE MOFETIL
     Route: 048
     Dates: start: 20130730

REACTIONS (6)
  - Transplant rejection [Recovered/Resolved]
  - Off label use [Unknown]
  - Pleural effusion [Recovered/Resolved]
  - Biliary anastomosis complication [Recovered/Resolved]
  - White blood cell count decreased [Recovered/Resolved]
  - Cytomegalovirus test positive [Recovered/Resolved]

NARRATIVE: CASE EVENT DATE: 20130810
